FAERS Safety Report 17623595 (Version 2)
Quarter: 2020Q2

REPORT INFORMATION
  Report Type: Spontaneous
  Country: US (occurrence: US)
  Receive Date: 20200403
  Receipt Date: 20200512
  Transmission Date: 20200713
  Serious: No
  Sender: FDA-Public Use
  Company Number: US-BAUSCH-BL-2020-006234

PATIENT
  Age: 55 Year
  Sex: Female
  Weight: 59.02 kg

DRUGS (5)
  1. LUMIFY [Suspect]
     Active Substance: BRIMONIDINE TARTRATE
     Indication: OCULAR HYPERAEMIA
     Dosage: ONE DROP IN EACH EYE WHEN NEEDED
     Route: 047
     Dates: start: 2019
  2. RESTASIS [Concomitant]
     Active Substance: CYCLOSPORINE
     Indication: DRY EYE
  3. BENZALKONIUM CHLORIDE. [Suspect]
     Active Substance: BENZALKONIUM CHLORIDE
     Dosage: RESTARTED
     Route: 047
     Dates: end: 202001
  4. LUMIFY [Suspect]
     Active Substance: BRIMONIDINE TARTRATE
     Dosage: RESTARTED
     Route: 047
     Dates: end: 202001
  5. BENZALKONIUM CHLORIDE. [Suspect]
     Active Substance: BENZALKONIUM CHLORIDE
     Indication: OCULAR HYPERAEMIA
     Dosage: ONE DROP IN EACH EYE WHEN NEEDED
     Route: 047
     Dates: start: 2019

REACTIONS (5)
  - Eye irritation [Not Recovered/Not Resolved]
  - Reaction to preservatives [Unknown]
  - Allergic reaction to excipient [Unknown]
  - Ocular hyperaemia [Unknown]
  - Condition aggravated [Unknown]
